FAERS Safety Report 3213815 (Version 2)
Quarter: 2020Q3

REPORT INFORMATION
  Report Type: Spontaneous
  Country: DE (occurrence: None)
  Receive Date: 19970813
  Receipt Date: 19990218
  Transmission Date: 20201105
  Serious: Yes (Death, Life-Threatening)
  Sender: FDA-Public Use
  Company Number: 199710241HPD

PATIENT
  Age: 79 Year
  Sex: Female
  Weight: 63 kg

DRUGS (45)
  1. DIGITOXIN [Suspect]
     Active Substance: DIGITOXIN
     Indication: CARDIAC FAILURE
     Dosage: QD PO
     Route: 048
     Dates: start: 19950109, end: 19950112
  2. METOCLOPRAMIDE HYDROCHLORIDE. [Suspect]
     Active Substance: METOCLOPRAMIDE HYDROCHLORIDE
     Indication: NAUSEA
     Dosage: 20 DROP TID PO
     Route: 048
     Dates: start: 19950125
  3. BUPRENORPHINE HYDROCHLORIDE. [Suspect]
     Active Substance: BUPRENORPHINE HYDROCHLORIDE
     Indication: PAIN
     Dosage: PRN PO
     Route: 048
  4. SUCRALFATE. [Suspect]
     Active Substance: SUCRALFATE
     Indication: PROPHYLAXIS AGAINST GASTROINTESTINAL ULCER
     Dosage: PO
     Route: 048
     Dates: end: 19950119
  5. GELATIN [Suspect]
     Active Substance: GELATIN
     Indication: FLUID REPLACEMENT
     Dosage: IV
     Route: 042
     Dates: start: 19950113, end: 19950115
  6. GLUCOSE, LIQUID [Concomitant]
     Active Substance: GLUCOSE, LIQUID
  7. BROMAZEPAM [Suspect]
     Active Substance: BROMAZEPAM
     Indication: RESTLESSNESS
     Dosage: 1.5 MG QD PO
     Route: 048
     Dates: start: 19950128, end: 19950128
  8. DORMICUM (MIDAZOLAM HYDROCHLORIDE) [Suspect]
     Active Substance: MIDAZOLAM HYDROCHLORIDE
     Indication: GENERAL ANAESTHESIA
     Dosage: IV
     Route: 042
     Dates: start: 19950113, end: 19950113
  9. FLUNITRAZEPAM [Suspect]
     Active Substance: FLUNITRAZEPAM
     Indication: GENERAL ANAESTHESIA
     Dosage: IV
     Route: 042
     Dates: start: 19950113, end: 19950203
  10. RINGERS SOLUTION [Suspect]
     Active Substance: CALCIUM CHLORIDE\POTASSIUM CHLORIDE\SODIUM CHLORIDE
     Indication: FLUID REPLACEMENT
     Dosage: 80 ML/H  IV
     Route: 042
     Dates: start: 19950113, end: 19950120
  11. INSULIN NOS [Suspect]
     Active Substance: INSULIN NOS
     Indication: BLOOD GLUCOSE
     Dosage: IV
     Route: 042
     Dates: start: 19950113, end: 19950114
  12. ZINACEF [Suspect]
     Active Substance: CEFUROXIME SODIUM
     Indication: PERICARDIAL DRAINAGE
     Dosage: IV
     Route: 042
     Dates: start: 19950113, end: 19950115
  13. TRAMADOL HYDROCHLORIDE. [Suspect]
     Active Substance: TRAMADOL HYDROCHLORIDE
     Indication: PAIN
     Dosage: 20 DROP/DAY PO
     Route: 048
     Dates: start: 19950126, end: 19950126
  14. VALIUM [Suspect]
     Active Substance: DIAZEPAM
     Indication: PAIN
     Dosage: PRN PO
     Route: 048
  15. HEPARIN [Suspect]
     Active Substance: HEPARIN SODIUM
     Indication: THROMBOSIS PROPHYLAXIS
     Dosage: SC
     Route: 058
     Dates: start: 19950109, end: 19950203
  16. DOBUTREX [Suspect]
     Active Substance: DOBUTAMINE HYDROCHLORIDE
     Indication: CARDIAC FAILURE
     Dosage: IV
     Route: 042
     Dates: start: 19950114, end: 19950116
  17. BROMHEXINE [Suspect]
     Active Substance: BROMHEXINE
     Dosage: PO
     Route: 048
     Dates: start: 19950116, end: 19950116
  18. NACL [Concomitant]
     Active Substance: SODIUM CHLORIDE
  19. LASIX [Suspect]
     Active Substance: FUROSEMIDE
     Indication: CARDIAC FAILURE
     Dosage: PO
     Route: 048
     Dates: end: 19950114
  20. ACETYLCYSTEINE. [Suspect]
     Active Substance: ACETYLCYSTEINE
     Dosage: PO
     Route: 048
     Dates: start: 19950113
  21. ALBUMIN (HUMAN) [Suspect]
     Active Substance: ALBUMIN HUMAN
     Indication: DISCOMFORT
     Dosage: IV
     Route: 042
     Dates: start: 19950113, end: 19950115
  22. DILZEM [Suspect]
     Active Substance: DILTIAZEM
     Indication: HYPERTENSION
     Dosage: IV
     Route: 042
     Dates: start: 19950113, end: 19950113
  23. ENFLURANE. [Suspect]
     Active Substance: ENFLURANE
     Indication: ANAESTHESIA
     Dosage: INH
     Route: 055
     Dates: start: 19950113, end: 19950113
  24. FERROUS SULFATE. [Suspect]
     Active Substance: FERROUS SULFATE
     Indication: IRON DEFICIENCY
     Dosage: PO
     Route: 048
     Dates: start: 19950116
  25. ADALAT [Concomitant]
     Active Substance: NIFEDIPINE
  26. ISOKET [Concomitant]
     Active Substance: ISOSORBIDE DINITRATE
  27. SUPRARENIN [Suspect]
     Active Substance: EPINEPHRINE
     Indication: SHOCK
     Dosage: IV
     Route: 042
     Dates: start: 19950113, end: 19950113
  28. ALLOPURINOL. [Suspect]
     Active Substance: ALLOPURINOL
     Indication: HYPERURICAEMIA
     Dosage: QD PO
     Route: 048
     Dates: start: 19950115
  29. BACTRIM [Suspect]
     Active Substance: SULFAMETHOXAZOLE\TRIMETHOPRIM
     Indication: URINARY TRACT INFECTION
     Dosage: PO
     Route: 048
     Dates: start: 19950122, end: 19950123
  30. MANNITOL. [Suspect]
     Active Substance: MANNITOL
     Indication: POLYURIA
     Dosage: IV
     Route: 042
     Dates: start: 19950113, end: 19950114
  31. UNSPECIFIED INGREDIENT [Suspect]
     Active Substance: UNSPECIFIED INGREDIENT
     Indication: LEFT VENTRICULAR FAILURE
     Dosage: IV
     Route: 042
     Dates: start: 19950113, end: 19950113
  32. ETHACRYNIC ACID. [Suspect]
     Active Substance: ETHACRYNIC ACID
     Indication: OEDEMA
     Dosage: PO
     Route: 048
     Dates: start: 19950116, end: 19950116
  33. COR?TENSOBON [Concomitant]
  34. ASS 100 [Suspect]
     Active Substance: ASPIRIN
     Indication: THROMBOSIS PROPHYLAXIS
     Dosage: 100 MG QD PO
     Route: 048
     Dates: start: 19950116, end: 19950124
  35. DOPAMINE [Suspect]
     Active Substance: DOPAMINE HYDROCHLORIDE
     Indication: SHOCK
     Dosage: 3 ML/H IV
     Route: 042
     Dates: start: 19950113, end: 19950122
  36. LEVOTHYROXINE SODIUM. [Suspect]
     Active Substance: LEVOTHYROXINE SODIUM
     Dosage: HYPOTHYROIDISM
  37. LASIX [Suspect]
     Active Substance: FUROSEMIDE
     Indication: CARDIAC FAILURE
     Dosage: IV
     Route: 042
     Dates: start: 19950113
  38. OXAZEPAM. [Suspect]
     Active Substance: OXAZEPAM
     Indication: RESTLESSNESS
     Dosage: 10 MG QD PO
     Route: 048
     Dates: start: 19950121, end: 19950121
  39. DIGITOXIN [Suspect]
     Active Substance: DIGITOXIN
     Indication: CARDIAC FAILURE
     Dosage: PO
     Route: 048
     Dates: start: 19950113, end: 19950114
  40. BELOC MITE (METOPROLOL TARTRATE) [Concomitant]
     Active Substance: METOPROLOL TARTRATE
  41. PERFAN [Suspect]
     Active Substance: ENOXIMONE
     Indication: CARDIAC FAILURE
     Dosage: IV
     Route: 042
     Dates: start: 19950113, end: 19950113
  42. LACTULOSE. [Suspect]
     Active Substance: LACTULOSE
     Indication: CONSTIPATION
     Dosage: PO
     Route: 048
     Dates: start: 19950109, end: 19950112
  43. KALIUM [Suspect]
     Active Substance: POTASSIUM CHLORIDE
     Indication: HYPOKALAEMIA
     Dosage: PO
     Route: 048
     Dates: start: 19950120, end: 19950120
  44. FENTANYL. [Suspect]
     Active Substance: FENTANYL
     Indication: GENERAL ANAESTHESIA
     Dosage: IV
     Route: 042
     Dates: start: 19950113, end: 19950113
  45. CIPROFLOXACIN. [Concomitant]
     Active Substance: CIPROFLOXACIN

REACTIONS (6)
  - Oral mucosal eruption [None]
  - Mouth ulceration [None]
  - Rash macular [None]
  - Conjunctivitis [None]
  - Shock [None]
  - Toxic epidermal necrolysis [None]

NARRATIVE: CASE EVENT DATE: 19950202
